FAERS Safety Report 7594506-4 (Version None)
Quarter: 2011Q2

REPORT INFORMATION
  Report Type: 
  Country: None (occurrence: None)
  Receive Date: 20110628
  Receipt Date: 20110615
  Transmission Date: 20111010
  Serious: Yes (Hospitalization)
  Sender: FDA-Public Use
  Company Number: CIO11011378

PATIENT
  Age: 18 Year
  Sex: Male

DRUGS (1)
  1. DEXTROMETHORPHAN HYDROBROMIDE [Suspect]
     Dosage: ORAL
     Route: 048

REACTIONS (8)
  - PSYCHOTIC DISORDER [None]
  - DISSOCIATIVE DISORDER [None]
  - DELUSION [None]
  - OFF LABEL USE [None]
  - INCORRECT DOSE ADMINISTERED [None]
  - HALLUCINATION, VISUAL [None]
  - PARANOIA [None]
  - DRUG ABUSE [None]
